FAERS Safety Report 18340567 (Version 1)
Quarter: 2020Q4

REPORT INFORMATION
  Report Type: Spontaneous
  Country: NL (occurrence: NL)
  Receive Date: 20201002
  Receipt Date: 20201002
  Transmission Date: 20210113
  Serious: Yes (Other)
  Sender: FDA-Public Use
  Company Number: NVSC2020NL263148

PATIENT
  Sex: Female
  Weight: 64 kg

DRUGS (2)
  1. REVOLADE [Suspect]
     Active Substance: ELTROMBOPAG
     Indication: IMMUNE THROMBOCYTOPENIA
     Dosage: 50 MG, QD (1XDD 1)
     Route: 065
     Dates: start: 201806
  2. FEMOSTAN [Concomitant]
     Indication: PRODUCT USED FOR UNKNOWN INDICATION
     Dosage: OMHULDE TABLET, 1/5 MG (MILLIGRAM)
     Route: 065

REACTIONS (1)
  - Retinal detachment [Unknown]
